FAERS Safety Report 22870319 (Version 2)
Quarter: 2023Q4

REPORT INFORMATION
  Report Type: Report from Study
  Country: US (occurrence: US)
  Receive Date: 20230827
  Receipt Date: 20231002
  Transmission Date: 20240110
  Serious: No
  Sender: FDA-Public Use
  Company Number: US-XERIS PHARMACEUTICALS-2023XER02130

PATIENT
  Sex: Female

DRUGS (2)
  1. RECORLEV [Suspect]
     Active Substance: LEVOKETOCONAZOLE
     Indication: Cushing^s syndrome
     Dosage: 1 TABLET (150 MG), 2X/DAY
     Route: 048
     Dates: start: 202307
  2. RECORLEV [Suspect]
     Active Substance: LEVOKETOCONAZOLE
     Dosage: 1 TABLET (150 MG), 2X/DAY
     Route: 048

REACTIONS (7)
  - COVID-19 [Unknown]
  - Pyrexia [Unknown]
  - Cough [Unknown]
  - Nasal congestion [Unknown]
  - Pain [Unknown]
  - Insomnia [Unknown]
  - Fatigue [Unknown]

NARRATIVE: CASE EVENT DATE: 20230101
